FAERS Safety Report 14204811 (Version 1)
Quarter: 2017Q4

REPORT INFORMATION
  Report Type: Spontaneous
  Country: US (occurrence: US)
  Receive Date: 20171118
  Receipt Date: 20171118
  Transmission Date: 20180321
  Serious: Yes (Other)
  Sender: FDA-Public Use
  Company Number: None

PATIENT
  Age: 68 Year
  Sex: Female
  Weight: 49.5 kg

DRUGS (7)
  1. MULTI VITAMIN [Concomitant]
     Active Substance: VITAMINS
  2. ADVAIR DISKUS [Concomitant]
     Active Substance: FLUTICASONE PROPIONATE\SALMETEROL XINAFOATE
  3. ASPRIN [Concomitant]
     Active Substance: ASPIRIN
  4. FLONASE [Suspect]
     Active Substance: FLUTICASONE PROPIONATE
     Indication: UPPER-AIRWAY COUGH SYNDROME
     Dosage: ?          QUANTITY:1 SPRAY(S);OTHER ROUTE:NASAL INHALATION?
     Route: 055
     Dates: start: 20160101, end: 20170701
  5. FLONASE [Suspect]
     Active Substance: FLUTICASONE PROPIONATE
     Indication: COUGH
     Dosage: ?          QUANTITY:1 SPRAY(S);OTHER ROUTE:NASAL INHALATION?
     Route: 055
     Dates: start: 20160101, end: 20170701
  6. METOPROLOL SUCC [Concomitant]
     Active Substance: METOPROLOL SUCCINATE
  7. CALCIUM WITH D [Concomitant]
     Active Substance: CALCIUM\VITAMIN D

REACTIONS (1)
  - Anosmia [None]

NARRATIVE: CASE EVENT DATE: 20170101
